FAERS Safety Report 14659831 (Version 4)
Quarter: 2018Q2

REPORT INFORMATION
  Report Type: Spontaneous
  Country: US (occurrence: US)
  Receive Date: 20180320
  Receipt Date: 20180515
  Transmission Date: 20180711
  Serious: Yes (Hospitalization, Other)
  Sender: FDA-Public Use
  Company Number: US-PFIZER INC-2018112088

PATIENT
  Age: 48 Year
  Sex: Male
  Weight: 110.2 kg

DRUGS (3)
  1. HYDROCHLOROTHIAZIDE. [Concomitant]
     Active Substance: HYDROCHLOROTHIAZIDE
     Dosage: UNK UNK, 1X/DAY
     Route: 048
  2. CHANTIX [Suspect]
     Active Substance: VARENICLINE TARTRATE
     Indication: SMOKING CESSATION THERAPY
     Dosage: 0.5 MG, 2X/DAY
     Route: 048
     Dates: start: 2018, end: 201802
  3. CHANTIX [Suspect]
     Active Substance: VARENICLINE TARTRATE
     Dosage: 1 MG, 2X/DAY
     Route: 048
     Dates: start: 2018, end: 201802

REACTIONS (16)
  - Malaise [Unknown]
  - Erythema [Recovering/Resolving]
  - Swelling [Unknown]
  - Urticaria [Recovering/Resolving]
  - Dyspnoea [Unknown]
  - Loss of consciousness [Recovered/Resolved]
  - Skin exfoliation [Recovering/Resolving]
  - Burns third degree [Recovering/Resolving]
  - Eye oedema [Recovering/Resolving]
  - Dry mouth [Recovering/Resolving]
  - Transient ischaemic attack [Recovered/Resolved]
  - Catatonia [Recovered/Resolved]
  - Drug eruption [Unknown]
  - Drug hypersensitivity [Unknown]
  - Skin infection [Unknown]
  - Pain [Unknown]

NARRATIVE: CASE EVENT DATE: 201802
